FAERS Safety Report 16899537 (Version 1)
Quarter: 2019Q4

REPORT INFORMATION
  Report Type: Spontaneous
  Country: US (occurrence: US)
  Receive Date: 20191008
  Receipt Date: 20191008
  Transmission Date: 20200122
  Serious: Yes (Life-Threatening)
  Sender: FDA-Public Use
  Company Number: None

PATIENT
  Age: 35 Year
  Sex: Female
  Weight: 63 kg

DRUGS (5)
  1. GABAPENTIN 1600 MG [Concomitant]
  2. VITAMIN D 2000 IU [Concomitant]
  3. DULOXETINE DR 60MG CAPSULES [Suspect]
     Active Substance: DULOXETINE
     Indication: FIBROMYALGIA
     Dosage: ?          QUANTITY:30 CAPSULE(S);?
     Route: 048
     Dates: start: 20190423, end: 20191008
  4. VITAMIN B12 500 MCG [Concomitant]
  5. CBD 25 MG [Concomitant]

REACTIONS (7)
  - Suicidal ideation [None]
  - Vomiting [None]
  - Decreased appetite [None]
  - Withdrawal syndrome [None]
  - Nausea [None]
  - Akathisia [None]
  - Depression [None]

NARRATIVE: CASE EVENT DATE: 20190925
